FAERS Safety Report 25063783 (Version 1)
Quarter: 2025Q1

REPORT INFORMATION
  Report Type: Spontaneous
  Country: US (occurrence: None)
  Receive Date: 20250311
  Receipt Date: 20250311
  Transmission Date: 20250409
  Serious: Yes (Life-Threatening, Hospitalization, Disabling)
  Sender: FDA-CTU
  Company Number: None

PATIENT
  Age: 40 Year
  Sex: Female
  Weight: 107.1 kg

DRUGS (7)
  1. APRI [Suspect]
     Active Substance: DESOGESTREL\ETHINYL ESTRADIOL
     Indication: Abnormal uterine bleeding
     Dates: start: 20250218, end: 20250302
  2. APRI [Suspect]
     Active Substance: DESOGESTREL\ETHINYL ESTRADIOL
     Indication: Heavy menstrual bleeding
  3. HEPARIN [Suspect]
     Active Substance: HEPARIN SODIUM
  4. ELIQUIS [Suspect]
     Active Substance: APIXABAN
  5. ESCITALOPRAM [Concomitant]
     Active Substance: ESCITALOPRAM OXALATE
  6. LISDEXAMFETAMINE [Concomitant]
     Active Substance: LISDEXAMFETAMINE
  7. GUANFACINE [Concomitant]
     Active Substance: GUANFACINE

REACTIONS (10)
  - Feeling abnormal [None]
  - Gastrointestinal disorder [None]
  - Abdominal pain [None]
  - Abdominal pain [None]
  - Constipation [None]
  - Fluid retention [None]
  - Deep vein thrombosis [None]
  - Abdominal distension [None]
  - Heavy menstrual bleeding [None]
  - Condition aggravated [None]

NARRATIVE: CASE EVENT DATE: 20250303
